FAERS Safety Report 9916353 (Version 1)
Quarter: 2014Q1

REPORT INFORMATION
  Report Type: Report from Study
  Country: TR (occurrence: TR)
  Receive Date: 20140221
  Receipt Date: 20140221
  Transmission Date: 20141002
  Serious: Yes (Other)
  Sender: FDA-Public Use
  Company Number: TR-US-EMD SERONO, INC.-7269352

PATIENT
  Sex: Female
  Weight: 65 kg

DRUGS (3)
  1. REBIF [Suspect]
     Indication: MULTIPLE SCLEROSIS
  2. BRUFEN /00109201/ [Suspect]
     Indication: ANALGESIC THERAPY
  3. LUSTRAL [Suspect]
     Indication: DEPRESSION

REACTIONS (4)
  - Toxic nodular goitre [Recovering/Resolving]
  - Hepatic steatosis [Not Recovered/Not Resolved]
  - Hepatomegaly [Not Recovered/Not Resolved]
  - Colitis [Not Recovered/Not Resolved]
